FAERS Safety Report 17283537 (Version 1)
Quarter: 2020Q1

REPORT INFORMATION
  Report Type: Spontaneous
  Country: US (occurrence: US)
  Receive Date: 20200117
  Receipt Date: 20200117
  Transmission Date: 20200409
  Serious: Yes (Death)
  Sender: FDA-Public Use
  Company Number: None

PATIENT
  Age: 61 Year
  Sex: Male

DRUGS (13)
  1. MULTIVITAMIN CAP [Concomitant]
     Dates: start: 20170125, end: 20190314
  2. ONDANSETRON INJ 4MG/2ML [Concomitant]
     Dates: start: 20170125, end: 20190314
  3. METHYLPRED TAB 4MG [Concomitant]
     Dates: start: 20170125, end: 20190314
  4. SMZ-TMP TAB 400-80MG [Concomitant]
     Dates: start: 20170125, end: 20190314
  5. SULFATHIAZOL POW [Concomitant]
     Dates: start: 20160120, end: 20190314
  6. DEXAMETHASON CON 1MG/ML [Concomitant]
     Dates: start: 20160120, end: 20190314
  7. PREVACID CAP 30MG DR [Concomitant]
     Dates: start: 20170125, end: 20190314
  8. KEPPRA TAB 1000MG [Concomitant]
     Dates: start: 20160120, end: 20190314
  9. DEXAMETHASON TAB 0.5MG [Concomitant]
     Dates: start: 20170125, end: 20190314
  10. OXYCODONE SOL 5MG/ML [Concomitant]
     Dates: start: 20170125, end: 20190314
  11. TEMOZOLOMIDE. [Suspect]
     Active Substance: TEMOZOLOMIDE
     Indication: BRAIN NEOPLASM MALIGNANT
     Dosage: ?          OTHER FREQUENCY:3DAILYW/140 X3 DLY;?
     Route: 048
     Dates: start: 20171006, end: 20190314
  12. TEMOZOLOMIDE. [Suspect]
     Active Substance: TEMOZOLOMIDE
     Indication: BRAIN NEOPLASM MALIGNANT
     Dosage: ?          OTHER FREQUENCY:3DAILYW/005 X3 DLY;?
     Route: 048
     Dates: start: 20171006, end: 20190314
  13. POT CL MICRO TAB 20MEQ CR [Concomitant]
     Dates: start: 20170125, end: 20190314

REACTIONS (1)
  - Death [None]

NARRATIVE: CASE EVENT DATE: 20190314
